FAERS Safety Report 22152129 (Version 1)
Quarter: 2023Q1

REPORT INFORMATION
  Report Type: Spontaneous
  Country: US (occurrence: US)
  Receive Date: 20230329
  Receipt Date: 20230329
  Transmission Date: 20230418
  Serious: No
  Sender: FDA-Public Use
  Company Number: US-BION-010908

PATIENT
  Age: 30 Year
  Sex: Female

DRUGS (1)
  1. ALEVE [Suspect]
     Active Substance: NAPROXEN SODIUM
     Indication: Product used for unknown indication
     Dosage: PATIENT TOOK 2 LIQUID GELS
     Route: 048
     Dates: start: 20220810, end: 20220812

REACTIONS (1)
  - Incorrect dose administered [Not Recovered/Not Resolved]
